FAERS Safety Report 8492819-5 (Version None)
Quarter: 2012Q3

REPORT INFORMATION
  Report Type: 
  Country: None (occurrence: None)
  Receive Date: 20120706
  Receipt Date: 20120626
  Transmission Date: 20120928
  Serious: Yes (Other)
  Sender: FDA-Public Use
  Company Number: US-JNJFOC-20120613358

PATIENT
  Sex: Male
  Weight: 106.6 kg

DRUGS (1)
  1. REMICADE [Suspect]
     Indication: RHEUMATOID ARTHRITIS
     Route: 042
     Dates: start: 20120301

REACTIONS (4)
  - DRUG INEFFECTIVE [None]
  - VOMITING [None]
  - GAIT DISTURBANCE [None]
  - NAUSEA [None]
